FAERS Safety Report 5846859-2 (Version None)
Quarter: 2008Q3

REPORT INFORMATION
  Report Type: 
  Country: None (occurrence: None)
  Receive Date: 20080815
  Receipt Date: 20080808
  Transmission Date: 20090109
  Serious: Yes (Death, Hospitalization)
  Sender: FDA-Public Use
  Company Number: PHEH2008US06979

PATIENT
  Sex: Male

DRUGS (5)
  1. ZOMETA [Suspect]
     Indication: METASTASES TO BONE
     Dosage: 4 MG, QMONTH
     Route: 042
     Dates: start: 20060303, end: 20080319
  2. TAXOTERE [Concomitant]
     Dosage: UNK
     Route: 042
     Dates: start: 20060705, end: 20070101
  3. PREDNISONE TAB [Concomitant]
  4. MITOXANTRONE [Concomitant]
  5. NEXAVAR [Concomitant]

REACTIONS (6)
  - ACTINOMYCOSIS [None]
  - MALIGNANT NEOPLASM PROGRESSION [None]
  - OSTEOMYELITIS [None]
  - OSTEONECROSIS [None]
  - PAIN IN JAW [None]
  - SURGERY [None]
